FAERS Safety Report 6057983-6 (Version None)
Quarter: 2009Q1

REPORT INFORMATION
  Report Type: 
  Country: None (occurrence: None)
  Receive Date: 20090129
  Receipt Date: 20090122
  Transmission Date: 20090719
  Serious: No
  Sender: FDA-Public Use
  Company Number: US-B.I. PHARMACEUTICALS,INC./RIDGEFIELD-2009-BP-00156BP

PATIENT
  Age: 70 Year
  Sex: Male

DRUGS (3)
  1. FLOMAX [Suspect]
     Indication: BENIGN PROSTATIC HYPERPLASIA
     Dosage: .4MG
     Route: 048
     Dates: start: 20040101, end: 20081213
  2. FLOMAX [Suspect]
     Indication: NOCTURIA
  3. LIPITOR [Concomitant]
     Indication: BLOOD CHOLESTEROL INCREASED
     Dosage: 10MG

REACTIONS (9)
  - ARTHRALGIA [None]
  - BREATH ODOUR [None]
  - DEPRESSION [None]
  - EJACULATION FAILURE [None]
  - GYNAECOMASTIA [None]
  - JOINT SWELLING [None]
  - MOOD ALTERED [None]
  - PRURITUS [None]
  - SOMNOLENCE [None]
